FAERS Safety Report 12214492 (Version 1)
Quarter: 2016Q1

REPORT INFORMATION
  Report Type: Spontaneous
  Country: US (occurrence: US)
  Receive Date: 20160328
  Receipt Date: 20160328
  Transmission Date: 20160526
  Serious: No
  Sender: FDA-Public Use
  Company Number: US-WARNER CHILCOTT, LLC-1049793

PATIENT
  Age: 71 Year
  Sex: Female
  Weight: 58.64 kg

DRUGS (2)
  1. ESTRACE [Suspect]
     Active Substance: ESTRADIOL
     Route: 067
  2. ANTIHYPERTENSIVES [Concomitant]
     Active Substance: UNSPECIFIED INGREDIENT

REACTIONS (5)
  - Urinary tract infection [None]
  - Vaginal haemorrhage [None]
  - Drug dose omission [None]
  - Product quality issue [None]
  - Vulvovaginal burning sensation [None]
